FAERS Safety Report 6779059-2 (Version None)
Quarter: 2010Q2

REPORT INFORMATION
  Report Type: 
  Country: None (occurrence: None)
  Receive Date: 20100618
  Receipt Date: 20100608
  Transmission Date: 20101027
  Serious: Yes (Death, Other)
  Sender: FDA-Public Use
  Company Number: JP-PFIZER INC-2010021358

PATIENT
  Age: 76 Year
  Sex: Male

DRUGS (11)
  1. ZYVOX [Suspect]
     Indication: STAPHYLOCOCCAL BACTERAEMIA
     Dosage: 600 MG, 2X/DAY
     Route: 041
     Dates: start: 20100129, end: 20100214
  2. LASIX [Suspect]
     Indication: RENAL FAILURE ACUTE
     Dosage: 20 MG, 2X/DAY
     Route: 042
     Dates: start: 20100129, end: 20100130
  3. LASIX [Suspect]
     Indication: OLIGURIA
     Dosage: 40 MG, 2X/DAY
     Route: 042
     Dates: start: 20100131, end: 20100204
  4. LASIX [Suspect]
     Dosage: 40 MG, 3X/DAY
     Route: 042
     Dates: start: 20100205
  5. AMIKACIN [Concomitant]
     Indication: STAPHYLOCOCCAL BACTERAEMIA
     Dosage: 100 MG, 2X/DAY
     Route: 042
     Dates: start: 20091230, end: 20100123
  6. DORIPENEM MONOHYDRATE [Concomitant]
     Indication: STAPHYLOCOCCAL BACTERAEMIA
     Dosage: 0.25 G, 2X/DAY
     Route: 042
     Dates: start: 20100115, end: 20100128
  7. VANCOMYCIN [Concomitant]
     Indication: STAPHYLOCOCCAL BACTERAEMIA
     Dosage: 0.5 G, 2X/DAY
     Route: 042
     Dates: start: 20100123, end: 20100128
  8. HANP [Concomitant]
     Indication: CARDIAC FAILURE
     Dosage: UNK
     Route: 042
     Dates: start: 20100129
  9. HANP [Concomitant]
     Indication: OLIGURIA
  10. DIGOSIN [Concomitant]
     Indication: TACHYCARDIA
     Dosage: 0.125 MG, 1X/DAY
     Route: 042
     Dates: start: 20100129, end: 20100215
  11. PREDOPA [Concomitant]
     Indication: OLIGURIA
     Dosage: UNK
     Route: 042
     Dates: start: 20100131, end: 20100217

REACTIONS (3)
  - HYPONATRAEMIA [None]
  - MULTI-ORGAN FAILURE [None]
  - RENAL IMPAIRMENT [None]
